FAERS Safety Report 5216018-5 (Version None)
Quarter: 2007Q1

REPORT INFORMATION
  Report Type: 
  Country: None (occurrence: None)
  Receive Date: 20061122
  Receipt Date: 20060721
  Transmission Date: 20070707
  Serious: Yes (Other)
  Sender: FDA-Public Use
  Company Number: 2006039060

PATIENT
  Age: 60 Year
  Sex: Female
  Weight: 97.5234 kg

DRUGS (4)
  1. LIPITOR [Suspect]
     Indication: BLOOD CHOLESTEROL
     Dates: start: 20041101, end: 20050601
  2. ATENOLOL [Concomitant]
  3. NAPROXEN [Concomitant]
  4. ASPIRIN [Concomitant]

REACTIONS (6)
  - BALANCE DISORDER [None]
  - FALL [None]
  - LIGAMENT INJURY [None]
  - MUSCULAR WEAKNESS [None]
  - MUSCULOSKELETAL STIFFNESS [None]
  - MYOSITIS [None]
